FAERS Safety Report 6858321-9 (Version None)
Quarter: 2010Q3

REPORT INFORMATION
  Report Type: 
  Country: None (occurrence: None)
  Receive Date: 20100719
  Receipt Date: 20080926
  Transmission Date: 20110219
  Serious: No
  Sender: FDA-Public Use
  Company Number: US-PFIZER INC-2008012184

PATIENT
  Sex: Female
  Weight: 72.6 kg

DRUGS (5)
  1. CHANTIX [Suspect]
     Indication: SMOKING CESSATION THERAPY
     Dates: start: 20080101, end: 20080101
  2. VALSARTAN [Concomitant]
  3. TRICOR [Concomitant]
  4. ZOCOR [Concomitant]
  5. LEXAPRO [Concomitant]
     Indication: DEPRESSION

REACTIONS (7)
  - FEAR [None]
  - FEELING ABNORMAL [None]
  - FEELING OF DESPAIR [None]
  - HYPERHIDROSIS [None]
  - MOOD SWINGS [None]
  - NIGHTMARE [None]
  - SLEEP DISORDER [None]
